FAERS Safety Report 18199386 (Version 1)
Quarter: 2020Q3

REPORT INFORMATION
  Report Type: Report from Study
  Country: US (occurrence: US)
  Receive Date: 20200826
  Receipt Date: 20200826
  Transmission Date: 20201103
  Serious: Yes (Other)
  Sender: FDA-Public Use
  Company Number: US-TEVA-2020-US-1817720

PATIENT
  Age: 71 Year
  Sex: Male

DRUGS (1)
  1. COPAXONE [Suspect]
     Active Substance: GLATIRAMER ACETATE
     Dosage: FORM STRENGTH: UNKNOWN
     Dates: start: 2010

REACTIONS (16)
  - Heart rate increased [Unknown]
  - Immediate post-injection reaction [Unknown]
  - Feeling abnormal [Unknown]
  - Injection site swelling [Unknown]
  - Oropharyngeal discomfort [Unknown]
  - Exophthalmos [Unknown]
  - Nausea [Unknown]
  - Injection site haemorrhage [Unknown]
  - Erythema [Unknown]
  - Skin discolouration [Unknown]
  - Unresponsive to stimuli [Unknown]
  - Flushing [Unknown]
  - Loss of consciousness [Recovering/Resolving]
  - Tachypnoea [Unknown]
  - Palpitations [Unknown]
  - Injection site erythema [Unknown]

NARRATIVE: CASE EVENT DATE: 20200817
